FAERS Safety Report 9709214 (Version 1)
Quarter: 2013Q4

REPORT INFORMATION
  Report Type: Spontaneous
  Country: US (occurrence: US)
  Receive Date: 20131125
  Receipt Date: 20131125
  Transmission Date: 20140711
  Serious: No
  Sender: FDA-Public Use
  Company Number: US-009507513-1311USA008041

PATIENT
  Sex: Female

DRUGS (6)
  1. ZOCOR [Suspect]
     Dosage: UNK
     Route: 048
  2. VIVELLE-DOT [Concomitant]
  3. CALTRATE (CALCIUM CARBONATE) [Concomitant]
  4. ASPIRIN [Concomitant]
     Dosage: LOW DOSE
     Route: 048
  5. IMITREX (SUMATRIPTAN) [Concomitant]
  6. HYDROCHLOROTHIAZIDE [Concomitant]
     Route: 048

REACTIONS (1)
  - Pain [Unknown]
